FAERS Safety Report 10725506 (Version 1)
Quarter: 2015Q1

REPORT INFORMATION
  Report Type: Spontaneous
  Country: US (occurrence: US)
  Receive Date: 20150121
  Receipt Date: 20150121
  Transmission Date: 20150721
  Serious: No
  Sender: FDA-Public Use
  Company Number: US-GLAXOSMITHKLINE-US2014030841

PATIENT
  Age: 52 Year
  Sex: Female

DRUGS (3)
  1. VITAMINS [Concomitant]
     Active Substance: VITAMINS
  2. BENLYSTA [Suspect]
     Active Substance: BELIMUMAB
     Indication: RHEUMATOID ARTHRITIS
     Dosage: 659 MG, CYC
     Route: 041
     Dates: start: 20141029
  3. ARAVA [Concomitant]
     Active Substance: LEFLUNOMIDE

REACTIONS (5)
  - Infusion site erythema [Recovering/Resolving]
  - Erythema [Recovered/Resolved]
  - Infusion site pain [Recovering/Resolving]
  - Peripheral swelling [Recovered/Resolved]
  - Off label use [Unknown]

NARRATIVE: CASE EVENT DATE: 2014
